FAERS Safety Report 6657783-X (Version None)
Quarter: 2010Q1

REPORT INFORMATION
  Report Type: 
  Country: None (occurrence: None)
  Receive Date: 20100330
  Receipt Date: 20090403
  Transmission Date: 20100710
  Serious: No
  Sender: FDA-Public Use
  Company Number: US-TYCO HEALTHCARE/MALLINCKRODT-T200900818

PATIENT
  Age: 59 Year
  Sex: Female
  Weight: 81.633 kg

DRUGS (2)
  1. METHADOSE [Suspect]
     Indication: DRUG DEPENDENCE
     Dosage: 120 MG, QD
     Route: 048
     Dates: start: 20090301
  2. METHADONE [Concomitant]
     Indication: DRUG DEPENDENCE
     Dosage: 120 MG, QD
     Route: 048
     Dates: end: 20090301

REACTIONS (5)
  - ALOPECIA [None]
  - DYSPEPSIA [None]
  - EUPHORIC MOOD [None]
  - FORMICATION [None]
  - HYPERHIDROSIS [None]
